FAERS Safety Report 8880757 (Version 2)
Quarter: 2012Q4

REPORT INFORMATION
  Report Type: 
  Country: FR (occurrence: FR)
  Receive Date: 20121101
  Receipt Date: 20121210
  Transmission Date: 20130627
  Serious: Yes (Death)
  Sender: FDA-Public Use
  Company Number: FR-GLAXOSMITHKLINE-B0839482A

PATIENT
  Age: 55 Year
  Sex: Male

DRUGS (9)
  1. ARIXTRA [Suspect]
     Indication: THROMBOSIS PROPHYLAXIS
     Dosage: 2.5MG Per day
     Route: 058
     Dates: start: 20111029
  2. DEROXAT [Concomitant]
     Dosage: 20MG At night
     Route: 048
  3. KEPPRA [Concomitant]
     Dosage: 500MG Twice per day
     Route: 048
  4. IMOVANE [Concomitant]
     Dosage: 7.5MG At night
     Route: 048
  5. MODOPAR [Concomitant]
     Dosage: 1TAB Three times per day
     Route: 048
  6. ISOPTINE [Concomitant]
     Dosage: 240MG In the morning
     Route: 048
  7. INEXIUM [Concomitant]
     Dosage: 20MG At night
     Route: 048
  8. FORLAX [Concomitant]
  9. DUPHALAC [Concomitant]

REACTIONS (4)
  - Haemorrhage intracranial [Fatal]
  - Clonic convulsion [Fatal]
  - Coma [Fatal]
  - Incorrect drug administration duration [Unknown]
